FAERS Safety Report 4734700-0 (Version None)
Quarter: 2005Q3

REPORT INFORMATION
  Report Type: 
  Country: None (occurrence: None)
  Receive Date: 20050804
  Receipt Date: 20050428
  Transmission Date: 20060218
  Serious: Yes (Hospitalization)
  Sender: FDA-Public Use
  Company Number: US-MERCK-0505USA00241

PATIENT
  Age: 65 Year
  Sex: Male
  Weight: 73 kg

DRUGS (8)
  1. VIOXX [Suspect]
     Indication: ARTHRITIS
     Route: 048
     Dates: start: 20000101, end: 20041001
  2. THEOPHYLLINE [Concomitant]
     Indication: ASTHMA
     Route: 065
     Dates: start: 19900101
  3. ALBUTEROL [Concomitant]
     Indication: ASTHMA
     Route: 055
  4. ACIPHEX [Concomitant]
     Route: 065
  5. SINGULAIR [Concomitant]
     Indication: ASTHMA
     Route: 065
  6. PULMICORT [Concomitant]
     Indication: ASTHMA
     Route: 065
  7. ULTRAM [Concomitant]
     Indication: BACK PAIN
     Route: 065
  8. FOSAMAX [Concomitant]
     Indication: BACK PAIN
     Route: 065

REACTIONS (4)
  - HYPERSENSITIVITY [None]
  - HYPERTENSION [None]
  - MYOCARDIAL INFARCTION [None]
  - NERVOUS SYSTEM DISORDER [None]
